FAERS Safety Report 11629206 (Version 1)
Quarter: 2015Q4

REPORT INFORMATION
  Report Type: Spontaneous
  Country: US (occurrence: US)
  Receive Date: 20151014
  Receipt Date: 20151014
  Transmission Date: 20160304
  Serious: No
  Sender: FDA-Public Use
  Company Number: US-APOTEX-2015AP007726

PATIENT

DRUGS (2)
  1. LEFLUNOMIDE. [Suspect]
     Active Substance: LEFLUNOMIDE
     Indication: SARCOIDOSIS
     Route: 065
  2. LEFLUNOMIDE. [Suspect]
     Active Substance: LEFLUNOMIDE
     Dosage: UNK

REACTIONS (7)
  - Skin exfoliation [Unknown]
  - Pruritus [Unknown]
  - Blister [Unknown]
  - Chest discomfort [Unknown]
  - Pain [Unknown]
  - Urticaria [Unknown]
  - Rash [Unknown]
